FAERS Safety Report 24194053 (Version 1)
Quarter: 2024Q3

REPORT INFORMATION
  Report Type: Spontaneous
  Country: US (occurrence: None)
  Receive Date: 20240808
  Receipt Date: 20240808
  Transmission Date: 20241016
  Serious: Yes (Hospitalization)
  Sender: Public
  Company Number: None

PATIENT
  Age: 72 Year
  Sex: Male

DRUGS (2)
  1. XDEMVY [Suspect]
     Active Substance: LOTILANER
     Indication: Product used for unknown indication
     Dosage: 1 GTT DROP(S) TWICE A DAY OPHTHALMIC
     Route: 047
     Dates: start: 20240726, end: 20240728
  2. XDEMVY [Concomitant]
     Active Substance: LOTILANER
     Dates: start: 20240726, end: 20240728

REACTIONS (1)
  - Intracranial aneurysm [None]

NARRATIVE: CASE EVENT DATE: 20240728
